FAERS Safety Report 18177455 (Version 1)
Quarter: 2020Q3

REPORT INFORMATION
  Report Type: Spontaneous
  Country: GB (occurrence: GB)
  Receive Date: 20200820
  Receipt Date: 20200820
  Transmission Date: 20201103
  Serious: Yes (Other)
  Sender: FDA-Public Use
  Company Number: GB-MYLANLABS-2020M1071675

PATIENT
  Age: 57 Year
  Sex: Male

DRUGS (10)
  1. DOXYCYCLINE. [Concomitant]
     Active Substance: DOXYCYCLINE
     Dosage: UNK
  2. CETUXIMAB. [Suspect]
     Active Substance: CETUXIMAB
     Indication: RECTAL CANCER
     Dosage: UNK, QD/1000MG/500ML
     Route: 048
     Dates: start: 202005
  3. DEXAMETHASONE. [Concomitant]
     Active Substance: DEXAMETHASONE
     Dosage: UNK
  4. ONDANSETRON [Concomitant]
     Active Substance: ONDANSETRON
     Dosage: UNK
  5. DIFFLAM [Concomitant]
     Active Substance: BENZYDAMINE HYDROCHLORIDE
     Dosage: UNK
  6. SODIUM CHLORIDE. [Concomitant]
     Active Substance: SODIUM CHLORIDE
     Dosage: UNK
  7. CAPECITABINE. [Suspect]
     Active Substance: CAPECITABINE
     Indication: RECTAL CANCER
     Dosage: 500MG 2, FIVE 150MG, 9 DAYS FOLLOWED BY 5 DAYS RESTARTING EVENING OF DAY 1
     Route: 048
     Dates: start: 202005
  8. CHLORPHENAMINE [Concomitant]
     Active Substance: CHLORPHENIRAMINE MALEATE
     Dosage: UNK
  9. ATROPINE. [Concomitant]
     Active Substance: ATROPINE
     Dosage: UNK
  10. IRINOTECAN [Suspect]
     Active Substance: IRINOTECAN
     Indication: RECTAL CANCER
     Dosage: 314MG/250ML
     Dates: start: 202005

REACTIONS (5)
  - Lower respiratory tract infection [Unknown]
  - Limb mass [Unknown]
  - Pulmonary embolism [Unknown]
  - Hypersomnia [Unknown]
  - Fatigue [Unknown]

NARRATIVE: CASE EVENT DATE: 20200703
